FAERS Safety Report 4720695-2 (Version None)
Quarter: 2005Q3

REPORT INFORMATION
  Report Type: 
  Country: None (occurrence: None)
  Receive Date: 20050719
  Receipt Date: 20050708
  Transmission Date: 20060218
  Serious: No
  Sender: FDA-Public Use
  Company Number: 215933

PATIENT
  Age: 16 Year
  Sex: Female
  Weight: 75.9 kg

DRUGS (3)
  1. XOLAIR [Suspect]
     Indication: ASTHMA
     Dosage: 375 MG, Q2W, SUBCUTANEOUS
     Route: 058
     Dates: start: 20050623
  2. ADVAIR                  (SALMETEROL XINAFOATE, FLUTICASONE PROPRIONATE [Concomitant]
  3. SINGULAIR [Concomitant]

REACTIONS (4)
  - APNOEA [None]
  - LOSS OF CONSCIOUSNESS [None]
  - PALLOR [None]
  - SYNCOPE VASOVAGAL [None]
